FAERS Safety Report 7941786-9 (Version None)
Quarter: 2011Q4

REPORT INFORMATION
  Report Type: 
  Country: None (occurrence: None)
  Receive Date: 20111128
  Receipt Date: 20111117
  Transmission Date: 20120403
  Serious: Yes (Hospitalization)
  Sender: FDA-Public Use
  Company Number: BE-SANOFI-AVENTIS-2011SA076452

PATIENT
  Age: 64 Year
  Weight: 78 kg

DRUGS (4)
  1. ATENOLOL [Concomitant]
     Indication: HYPERTENSION
     Route: 048
  2. CAPECITABINE [Suspect]
     Route: 065
  3. DOCETAXEL [Suspect]
     Route: 065
  4. LIPITOR [Concomitant]
     Route: 048

REACTIONS (1)
  - SEROMA [None]
